FAERS Safety Report 19463300 (Version 1)
Quarter: 2021Q2

REPORT INFORMATION
  Report Type: Spontaneous
  Country: GB (occurrence: GB)
  Receive Date: 20210625
  Receipt Date: 20210625
  Transmission Date: 20210717
  Serious: Yes (Hospitalization)
  Sender: FDA-Public Use
  Company Number: GB-TEVA-2021-GB-1924385

PATIENT
  Age: 76 Year
  Sex: Female

DRUGS (3)
  1. CLARITHROMYCIN. [Suspect]
     Active Substance: CLARITHROMYCIN
     Indication: PNEUMONIA
     Route: 048
  2. AMOXICILLIN. [Interacting]
     Active Substance: AMOXICILLIN
     Route: 048
  3. WARFARIN [Interacting]
     Active Substance: WARFARIN
     Indication: ATRIAL FIBRILLATION
     Route: 065

REACTIONS (4)
  - Drug interaction [Recovered/Resolved]
  - Colostomy [Recovered/Resolved]
  - Large intestinal obstruction [Recovered/Resolved]
  - Abdominal wall haematoma [Unknown]
